FAERS Safety Report 7528305-6 (Version None)
Quarter: 2011Q2

REPORT INFORMATION
  Report Type: 
  Country: None (occurrence: None)
  Receive Date: 20110531
  Receipt Date: 20110516
  Transmission Date: 20111010
  Serious: Yes (Hospitalization)
  Sender: FDA-Public Use
  Company Number: 2011MA005948

PATIENT
  Age: 84 Year
  Sex: Male

DRUGS (1)
  1. BUPROPION HYDROCHLORIDE [Suspect]
     Indication: POSTPARTUM STRESS DISORDER
     Dosage: 150 MG, BID

REACTIONS (13)
  - HALLUCINATION, VISUAL [None]
  - VERTIGO [None]
  - RENAL FAILURE ACUTE [None]
  - MUSCULAR WEAKNESS [None]
  - DYSARTHRIA [None]
  - FALL [None]
  - DELIRIUM [None]
  - ATAXIA [None]
  - TREMOR [None]
  - PNEUMONIA [None]
  - MENTAL STATUS CHANGES [None]
  - MYOCLONUS [None]
  - AGITATION [None]
